FAERS Safety Report 4321888-9 (Version None)
Quarter: 2004Q1

REPORT INFORMATION
  Report Type: 
  Country: None (occurrence: None)
  Receive Date: 20040315
  Receipt Date: 20031222
  Transmission Date: 20041129
  Serious: No
  Sender: FDA-Public Use
  Company Number: 2003185745US

PATIENT
  Age: 65 Year
  Sex: Female

DRUGS (6)
  1. BEXTRA [Suspect]
     Indication: OSTEOARTHRITIS
     Dosage: 20 MG, QD
     Dates: start: 20031109
  2. ELAVIL [Suspect]
  3. GLUCOVANCE [Concomitant]
  4. DIOVAN [Concomitant]
  5. NADOLOL [Concomitant]
  6. LANOXIN [Concomitant]

REACTIONS (2)
  - FEELING ABNORMAL [None]
  - HEADACHE [None]
